FAERS Safety Report 24526533 (Version 1)
Quarter: 2024Q4

REPORT INFORMATION
  Report Type: Spontaneous
  Country: CZ (occurrence: CZ)
  Receive Date: 20241021
  Receipt Date: 20241021
  Transmission Date: 20250115
  Serious: No
  Sender: ROCHE
  Company Number: CZ-ROCHE-3448169

PATIENT
  Sex: Male
  Weight: 10.0 kg

DRUGS (5)
  1. ZELBORAF [Suspect]
     Active Substance: VEMURAFENIB
     Indication: Langerhans^ cell histiocytosis
     Dosage: DOSE OF 22.8 MG/KG/DAY DIVIDED INTO TWO DOSES, I.E. ZELBORAF 240 MG TAB 1/2-0-1/2 TAB PO
     Route: 048
     Dates: start: 201607, end: 201705
  2. VINBLASTINE [Concomitant]
     Active Substance: VINBLASTINE
  3. DABRAFENIB [Concomitant]
     Active Substance: DABRAFENIB
  4. TRAMETINIB [Concomitant]
     Active Substance: TRAMETINIB
  5. CLADRIBINE [Concomitant]
     Active Substance: CLADRIBINE

REACTIONS (4)
  - Off label use [Unknown]
  - Off label use [Unknown]
  - Skin toxicity [Unknown]
  - Hypothyroidism [Unknown]
